FAERS Safety Report 6260327-8 (Version None)
Quarter: 2009Q3

REPORT INFORMATION
  Report Type: 
  Country: None (occurrence: None)
  Receive Date: 20090708
  Receipt Date: 20090626
  Transmission Date: 20100115
  Serious: Yes (Life-Threatening)
  Sender: FDA-Public Use
  Company Number: GB-PFIZER INC-2009232547

PATIENT
  Age: 78 Year

DRUGS (3)
  1. PHENYTOIN AND PHENYTOIN SODIUM [Suspect]
     Indication: EPILEPSY
     Dosage: 830 MG, UNK
     Route: 042
     Dates: start: 20090618, end: 20090618
  2. ADRENALINE [Concomitant]
     Dosage: 0.07 UG/KG, ONCE A MINUTE
  3. NORADRENALINE [Concomitant]
     Dosage: 0.04 UG/KG, ONE A MINUTE

REACTIONS (3)
  - BRADYCARDIA [None]
  - CARDIAC ARREST [None]
  - HYPOTENSION [None]
